FAERS Safety Report 18591925 (Version 2)
Quarter: 2020Q4

REPORT INFORMATION
  Report Type: Spontaneous
  Country: US (occurrence: US)
  Receive Date: 20201208
  Receipt Date: 20201214
  Transmission Date: 20210114
  Serious: Yes (Death)
  Sender: FDA-Public Use
  Company Number: US-PFIZER INC-2020483173

PATIENT
  Age: 64 Year
  Sex: Female

DRUGS (1)
  1. MEKTOVI [Suspect]
     Active Substance: BINIMETINIB
     Dosage: 45 MG

REACTIONS (1)
  - Death [Fatal]
